FAERS Safety Report 5279891-0 (Version None)
Quarter: 2007Q1

REPORT INFORMATION
  Report Type: 
  Country: None (occurrence: None)
  Receive Date: 20070329
  Receipt Date: 20070320
  Transmission Date: 20070707
  Serious: Yes (Hospitalization)
  Sender: FDA-Public Use
  Company Number: 2007SE01622

PATIENT
  Age: 28115 Day
  Sex: Female

DRUGS (8)
  1. ARIMIDEX [Suspect]
     Indication: BREAST CANCER FEMALE
     Route: 048
     Dates: start: 20060425
  2. TIPAROL [Concomitant]
     Indication: PAIN
     Route: 048
     Dates: start: 20060620
  3. ALVEDON [Concomitant]
     Indication: PAIN
     Route: 048
     Dates: start: 20060620
  4. PREDNISOLONE [Concomitant]
     Indication: ARTHRALGIA
     Route: 048
     Dates: start: 20060818
  5. PREDNISOLONE [Concomitant]
     Indication: JOINT STIFFNESS
     Route: 048
     Dates: start: 20060818
  6. PANTOPRAZOLE SODIUM [Concomitant]
     Indication: PROPHYLAXIS AGAINST GASTROINTESTINAL ULCER
     Route: 048
     Dates: start: 20060818
  7. EVIMIN [Concomitant]
     Route: 048
     Dates: start: 20061207
  8. IMOVANE [Concomitant]
     Indication: INSOMNIA
     Dates: start: 20061207

REACTIONS (3)
  - FATIGUE [None]
  - HEADACHE [None]
  - VERTIGO [None]
